FAERS Safety Report 9344719 (Version 1)
Quarter: 2013Q2

REPORT INFORMATION
  Report Type: Spontaneous
  Country: US (occurrence: US)
  Receive Date: 20130612
  Receipt Date: 20130612
  Transmission Date: 20140414
  Serious: Yes (Other)
  Sender: FDA-Public Use
  Company Number: US-PFIZER INC-2013173312

PATIENT
  Age: 5 Year
  Sex: Male
  Weight: 29.03 kg

DRUGS (1)
  1. AZITHROMYCIN [Suspect]
     Indication: UPPER RESPIRATORY TRACT INFECTION
     Dosage: UNK, 1X/DAY FOR 3 DAYS
     Dates: start: 201305, end: 201305

REACTIONS (2)
  - Hepatitis acute [Unknown]
  - Pharyngitis streptococcal [Unknown]
